FAERS Safety Report 7787772-3 (Version None)
Quarter: 2011Q3

REPORT INFORMATION
  Report Type: 
  Country: None (occurrence: None)
  Receive Date: 20110929
  Receipt Date: 20110921
  Transmission Date: 20111222
  Serious: Yes (Hospitalization)
  Sender: FDA-Public Use
  Company Number: US-RB-029319-11

PATIENT
  Age: 45 Year
  Sex: Female

DRUGS (5)
  1. NEURONTIN [Concomitant]
     Indication: NEUROPATHY PERIPHERAL
     Dosage: UNKNOWN DOSING DETAILS
     Route: 065
  2. SUBOXONE [Suspect]
     Route: 060
     Dates: start: 20110601, end: 20110801
  3. SUBOXONE [Suspect]
     Indication: PAIN
     Dosage: SUBLINGUAL FILM
     Route: 060
     Dates: start: 20110618
  4. INSULIN [Concomitant]
     Indication: DIABETES MELLITUS
     Dosage: TAKES INUSLIN DAILY, UNKNOWN DOSING DETAILS
     Route: 065
  5. SUBOXONE [Suspect]
     Indication: DRUG DEPENDENCE
     Dosage: SUBLINGUAL FILM
     Route: 060
     Dates: end: 20110601

REACTIONS (5)
  - DYSARTHRIA [None]
  - DRUG WITHDRAWAL SYNDROME [None]
  - MEMORY IMPAIRMENT [None]
  - BLOOD GLUCOSE INCREASED [None]
  - AGITATION [None]
